FAERS Safety Report 25857952 (Version 1)
Quarter: 2025Q3

REPORT INFORMATION
  Report Type: Spontaneous
  Country: US (occurrence: US)
  Receive Date: 20250929
  Receipt Date: 20250929
  Transmission Date: 20251020
  Serious: No
  Sender: ELI LILLY AND COMPANY
  Company Number: US-ELI_LILLY_AND_COMPANY-US202509006889

PATIENT
  Age: 69 Year
  Sex: Female

DRUGS (8)
  1. KISUNLA [Suspect]
     Active Substance: DONANEMAB-AZBT
     Indication: Product used for unknown indication
     Route: 042
  2. KISUNLA [Suspect]
     Active Substance: DONANEMAB-AZBT
     Route: 042
  3. KISUNLA [Suspect]
     Active Substance: DONANEMAB-AZBT
     Route: 042
  4. KISUNLA [Suspect]
     Active Substance: DONANEMAB-AZBT
     Route: 042
  5. KISUNLA [Suspect]
     Active Substance: DONANEMAB-AZBT
     Route: 042
  6. KISUNLA [Suspect]
     Active Substance: DONANEMAB-AZBT
     Route: 042
  7. KISUNLA [Suspect]
     Active Substance: DONANEMAB-AZBT
     Route: 042
     Dates: start: 20250905
  8. ZYRTEC [Concomitant]
     Active Substance: CETIRIZINE HYDROCHLORIDE
     Indication: Premedication
     Route: 065
     Dates: start: 20250905

REACTIONS (1)
  - Flushing [Unknown]
